FAERS Safety Report 10305868 (Version 1)
Quarter: 2014Q3

REPORT INFORMATION
  Report Type: Spontaneous
  Country: US (occurrence: US)
  Receive Date: 20140715
  Receipt Date: 20140715
  Transmission Date: 20150326
  Serious: Yes (Hospitalization, Disabling)
  Sender: FDA-Public Use
  Company Number: US-PFIZER INC-2014193855

PATIENT
  Age: 59 Year
  Sex: Female
  Weight: 51.7 kg

DRUGS (10)
  1. ABILIFY [Concomitant]
     Active Substance: ARIPIPRAZOLE
     Indication: DEPRESSION
     Dosage: UNK
  2. LYRICA [Suspect]
     Active Substance: PREGABALIN
     Indication: FIBROMYALGIA
     Dosage: 75 MG, 2X/DAY
     Route: 048
  3. BENTYL [Concomitant]
     Active Substance: DICYCLOMINE HYDROCHLORIDE
     Indication: IRRITABLE BOWEL SYNDROME
     Dosage: 20 MG, 4X/DAY
  4. CARAFATE [Concomitant]
     Active Substance: SUCRALFATE
     Indication: REFLUX GASTRITIS
     Dosage: UNK
  5. TRICOR [Suspect]
     Active Substance: FENOFIBRATE
     Dosage: UNK
     Dates: end: 2014
  6. ZOLOFT [Concomitant]
     Active Substance: SERTRALINE HYDROCHLORIDE
     Indication: ANXIETY
     Dosage: UNK
  7. CLONAZEPAM. [Concomitant]
     Active Substance: CLONAZEPAM
     Indication: ANXIETY
     Dosage: UNK
  8. CLONAZEPAM. [Concomitant]
     Active Substance: CLONAZEPAM
     Indication: DEPRESSION
  9. OMEPRAZOLE. [Concomitant]
     Active Substance: OMEPRAZOLE
     Indication: REFLUX GASTRITIS
     Dosage: UNK, AT NIGHT
  10. ZOLOFT [Concomitant]
     Active Substance: SERTRALINE HYDROCHLORIDE
     Indication: DEPRESSION

REACTIONS (7)
  - Fibromyalgia [Unknown]
  - Rhabdomyolysis [Unknown]
  - Anxiety [Unknown]
  - Depression [Unknown]
  - Migraine [Unknown]
  - Blood alkaline phosphatase increased [Unknown]
  - Arthritis [Unknown]

NARRATIVE: CASE EVENT DATE: 201402
